FAERS Safety Report 8363937-7 (Version None)
Quarter: 2012Q2

REPORT INFORMATION
  Report Type: 
  Country: None (occurrence: None)
  Receive Date: 20120514
  Receipt Date: 20120430
  Transmission Date: 20120825
  Serious: Yes (Hospitalization, Other)
  Sender: FDA-Public Use
  Company Number: DSA_56335_2012

PATIENT
  Sex: Male

DRUGS (3)
  1. TIKOSYN [Suspect]
     Indication: ATRIAL FIBRILLATION
     Dosage: (500 MG BID), (250 MG BID), (125 MG BID)
     Dates: start: 20120404
  2. METOPROLOL [Concomitant]
  3. CARDIZEM [Suspect]
     Indication: HEART RATE ABNORMAL
     Dosage: (20 MG, 20 MG)

REACTIONS (3)
  - ELECTROCARDIOGRAM QT PROLONGED [None]
  - ATRIOVENTRICULAR BLOCK FIRST DEGREE [None]
  - DRUG INEFFECTIVE [None]
